FAERS Safety Report 21436956 (Version 1)
Quarter: 2022Q4

REPORT INFORMATION
  Report Type: Spontaneous
  Country: CN (occurrence: CN)
  Receive Date: 20221010
  Receipt Date: 20221010
  Transmission Date: 20230113
  Serious: Yes (Disabling)
  Sender: FDA-Public Use
  Company Number: CN-NAPPMUNDI-GBR-2022-0101939

PATIENT
  Age: 80 Year
  Sex: Female
  Weight: 61 kg

DRUGS (4)
  1. BUPRENORPHINE [Suspect]
     Active Substance: BUPRENORPHINE
     Indication: Analgesic therapy
     Dosage: 5 MILLIGRAM, 1/WEEK
     Route: 062
     Dates: start: 20220914, end: 20220918
  2. ETORICOXIB [Suspect]
     Active Substance: ETORICOXIB
     Indication: Analgesic therapy
     Dosage: 60 MILLIGRAM, DAILY
     Route: 048
     Dates: start: 20220911, end: 20220913
  3. OMEPRAZOLE [Suspect]
     Active Substance: OMEPRAZOLE
     Indication: Prophylaxis
     Dosage: 20 MILLIGRAM, DAILY (ENTERIC-COATED CAPSULES)
     Route: 048
     Dates: start: 20220911, end: 20220914
  4. CALCIUM CARBONATE\CHOLECALCIFEROL [Concomitant]
     Active Substance: CALCIUM CARBONATE\CHOLECALCIFEROL
     Indication: Mineral supplementation
     Dosage: 1 DOSAGE FORM, DAILY
     Dates: start: 20220910, end: 20220928

REACTIONS (3)
  - Alanine aminotransferase increased [Recovering/Resolving]
  - Aspartate aminotransferase increased [Recovering/Resolving]
  - Gamma-glutamyltransferase increased [Recovering/Resolving]

NARRATIVE: CASE EVENT DATE: 20220917
